FAERS Safety Report 14398235 (Version 2)
Quarter: 2018Q1

REPORT INFORMATION
  Report Type: Spontaneous
  Country: US (occurrence: US)
  Receive Date: 20180116
  Receipt Date: 20180209
  Transmission Date: 20180509
  Serious: Yes (Death, Hospitalization, Other)
  Sender: FDA-Public Use
  Company Number: US-GILEAD-2018-0315088

PATIENT
  Age: 93 Year
  Sex: Female

DRUGS (3)
  1. PHENERGAN [Suspect]
     Active Substance: PROMETHAZINE HYDROCHLORIDE
     Indication: NAUSEA
     Route: 065
  2. RANEXA [Suspect]
     Active Substance: RANOLAZINE
     Indication: PRODUCT USED FOR UNKNOWN INDICATION
     Dosage: 1500 MG, BID
     Route: 065
     Dates: start: 20171128, end: 20180107
  3. RANEXA [Suspect]
     Active Substance: RANOLAZINE
     Dosage: 500 MG, BID
     Route: 065

REACTIONS (17)
  - Cardiac failure [Fatal]
  - Seizure like phenomena [Unknown]
  - Dizziness [Unknown]
  - Nausea [Unknown]
  - Sepsis [Fatal]
  - Hypophagia [Not Recovered/Not Resolved]
  - General physical health deterioration [Not Recovered/Not Resolved]
  - Cerebrovascular accident [Unknown]
  - Decubitus ulcer [Unknown]
  - Fall [Unknown]
  - Dysphagia [Unknown]
  - Wrong technique in product usage process [Unknown]
  - Depressed level of consciousness [Unknown]
  - Confusional state [Not Recovered/Not Resolved]
  - Accidental overdose [Unknown]
  - Lower limb fracture [Unknown]
  - Asthenia [Unknown]
